FAERS Safety Report 5880938-9 (Version None)
Quarter: 2008Q3

REPORT INFORMATION
  Report Type: 
  Country: None (occurrence: None)
  Receive Date: 20080912
  Receipt Date: 20080609
  Transmission Date: 20090109
  Serious: No
  Sender: FDA-Public Use
  Company Number: US-ABBOTT-08P-163-0457179-00

PATIENT
  Sex: Female
  Weight: 59.02 kg

DRUGS (4)
  1. HUMIRA [Suspect]
     Indication: CROHN'S DISEASE
     Route: 050
     Dates: start: 20080201
  2. PHENERGAN HCL [Concomitant]
     Indication: NAUSEA
  3. COLISTIPAL [Concomitant]
     Indication: GALLBLADDER DISORDER
  4. IRON PILL [Concomitant]
     Indication: BLOOD IRON DECREASED

REACTIONS (4)
  - DRY SKIN [None]
  - INJECTION SITE HAEMATOMA [None]
  - INJECTION SITE PAIN [None]
  - PSORIASIS [None]
